FAERS Safety Report 10234203 (Version 1)
Quarter: 2014Q2

REPORT INFORMATION
  Report Type: Spontaneous
  Country: DE (occurrence: DE)
  Receive Date: 20140612
  Receipt Date: 20140612
  Transmission Date: 20141212
  Serious: Yes (Other)
  Sender: FDA-Public Use
  Company Number: DE-MYLANLABS-2014S1012831

PATIENT
  Age: 58 Year
  Sex: Female

DRUGS (11)
  1. CITALOPRAM [Suspect]
     Route: 048
     Dates: start: 20121004, end: 20121018
  2. CITALOPRAM [Suspect]
     Route: 048
     Dates: start: 20121019, end: 20121030
  3. CITALOPRAM [Suspect]
     Route: 048
     Dates: start: 20121031, end: 20121106
  4. OPIPRAMOL [Suspect]
     Route: 048
     Dates: start: 20121102, end: 20121106
  5. VALDOXAN [Suspect]
     Route: 048
     Dates: start: 20121021, end: 20121105
  6. DIOVAN [Concomitant]
     Route: 048
  7. HCT [Concomitant]
     Route: 048
  8. GALVUS [Concomitant]
     Route: 048
  9. BISOPROLOL [Concomitant]
     Route: 048
  10. L-THYROXIN [Concomitant]
     Route: 048
  11. TORASEMID [Concomitant]
     Route: 048

REACTIONS (1)
  - Blood creatine phosphokinase increased [Recovered/Resolved]
